FAERS Safety Report 9388870 (Version 2)
Quarter: 2013Q3

REPORT INFORMATION
  Report Type: Report from Study
  Country: US (occurrence: US)
  Receive Date: 20130708
  Receipt Date: 20130816
  Transmission Date: 20140515
  Serious: Yes (Death, Hospitalization, Other)
  Sender: FDA-Public Use
  Company Number: US-ABBOTT-13P-163-1114755-00

PATIENT
  Age: 45 Year
  Sex: Female
  Weight: 153.91 kg

DRUGS (9)
  1. LUPRON DEPOT [Suspect]
     Indication: OVARIAN CANCER
     Route: 050
     Dates: start: 20130404
  2. ANTIVERT [Concomitant]
     Indication: PRODUCT USED FOR UNKNOWN INDICATION
     Route: 048
  3. LISINOPRIL [Concomitant]
     Indication: PRODUCT USED FOR UNKNOWN INDICATION
     Route: 048
  4. ZOLOFT [Concomitant]
     Indication: PRODUCT USED FOR UNKNOWN INDICATION
     Route: 048
  5. LIPITOR [Concomitant]
     Indication: PRODUCT USED FOR UNKNOWN INDICATION
     Dosage: AT BEDTIME
     Route: 048
  6. PROTONIX [Concomitant]
     Indication: PRODUCT USED FOR UNKNOWN INDICATION
     Route: 048
  7. LOVENOX [Concomitant]
     Indication: PRODUCT USED FOR UNKNOWN INDICATION
     Route: 058
  8. HUMALOG [Concomitant]
     Indication: PRODUCT USED FOR UNKNOWN INDICATION
     Dosage: SLIDING SCALE
     Route: 058
  9. ZOFRAN [Concomitant]
     Indication: PRODUCT USED FOR UNKNOWN INDICATION
     Route: 048

REACTIONS (9)
  - Cerebrovascular accident [Fatal]
  - Metastatic neoplasm [Fatal]
  - Endometrial cancer [Unknown]
  - Hepatocellular injury [Unknown]
  - Total lung capacity decreased [Unknown]
  - Thrombocytopenia [Unknown]
  - Off label use [Unknown]
  - Abdominal distension [Unknown]
  - Ascites [Unknown]
